FAERS Safety Report 7893815-9 (Version None)
Quarter: 2011Q4

REPORT INFORMATION
  Report Type: 
  Country: None (occurrence: None)
  Receive Date: 20111104
  Receipt Date: 20111029
  Transmission Date: 20120403
  Serious: Yes (Hospitalization)
  Sender: FDA-Public Use
  Company Number: BR-B.I. PHARMACEUTICALS,INC./RIDGEFIELD-2011-BR-01167BR

PATIENT
  Age: 82 Year
  Sex: Female
  Weight: 51 kg

DRUGS (3)
  1. PRADAXA [Suspect]
     Indication: THROMBOSIS PROPHYLAXIS
     Dosage: 220 MG
     Route: 048
  2. ATENOLOL [Concomitant]
  3. CILOSTAZOL [Concomitant]
     Indication: PERIPHERAL VASCULAR DISORDER

REACTIONS (6)
  - CHEST PAIN [None]
  - DIPLEGIA [None]
  - ISCHAEMIA [None]
  - DYSARTHRIA [None]
  - ISCHAEMIC STROKE [None]
  - CAROTID ARTERY OCCLUSION [None]
